FAERS Safety Report 13148101 (Version 2)
Quarter: 2017Q1

REPORT INFORMATION
  Report Type: Spontaneous
  Country: DK (occurrence: DK)
  Receive Date: 20170125
  Receipt Date: 20170309
  Transmission Date: 20170428
  Serious: Yes (Other)
  Sender: FDA-Public Use
  Company Number: PHHY2017DK009364

PATIENT
  Age: 43 Year
  Sex: Male

DRUGS (1)
  1. ENTRESTO [Suspect]
     Active Substance: SACUBITRIL\VALSARTAN
     Indication: CARDIAC FAILURE
     Dosage: 100 MG, BID
     Route: 065
     Dates: start: 20170106, end: 20170110

REACTIONS (9)
  - Sensation of foreign body [Unknown]
  - White blood cell count abnormal [Recovered/Resolved]
  - C-reactive protein increased [Unknown]
  - Pyrexia [Recovered/Resolved]
  - Nausea [Unknown]
  - Headache [Recovered/Resolved]
  - Dizziness [Unknown]
  - Cough [Unknown]
  - Pneumonia [Unknown]

NARRATIVE: CASE EVENT DATE: 201701
